FAERS Safety Report 9258752 (Version 2)
Quarter: 2014Q1

REPORT INFORMATION
  Report Type: Spontaneous
  Country: US (occurrence: None)
  Receive Date: 20121212
  Receipt Date: 20130314
  Transmission Date: 20141002
  Serious: No
  Sender: FDA-Public Use
  Company Number: 1211USA004436

PATIENT
  Age: 54 Year
  Sex: Male
  Weight: 79.4 kg

DRUGS (3)
  1. VICTRELIS [Suspect]
     Indication: HEPATITIS C
  2. PEGASYS [Suspect]
  3. RIBAPAK [Suspect]

REACTIONS (10)
  - Arthralgia [None]
  - Pruritus [None]
  - White blood cell count abnormal [None]
  - Arthralgia [None]
  - Platelet count decreased [None]
  - Myalgia [None]
  - Insomnia [None]
  - Irritability [None]
  - Pain in extremity [None]
  - Pain [None]
